FAERS Safety Report 9854162 (Version 1)
Quarter: 2014Q1

REPORT INFORMATION
  Report Type: Report from Study
  Country: US (occurrence: US)
  Receive Date: 20140130
  Receipt Date: 20140130
  Transmission Date: 20141002
  Serious: Yes (Hospitalization)
  Sender: FDA-Public Use
  Company Number: US-ROCHE-1339479

PATIENT
  Age: 70 Year
  Sex: Male

DRUGS (2)
  1. LUCENTIS [Suspect]
     Indication: RETINAL OEDEMA
     Route: 065
  2. COREG [Suspect]
     Indication: PRODUCT USED FOR UNKNOWN INDICATION
     Route: 065

REACTIONS (3)
  - Dizziness [Unknown]
  - Heart rate decreased [Unknown]
  - Blood potassium increased [Unknown]
